FAERS Safety Report 4370114-3 (Version None)
Quarter: 2004Q2

REPORT INFORMATION
  Report Type: 
  Country: None (occurrence: None)
  Receive Date: 20040527
  Receipt Date: 20040513
  Transmission Date: 20050107
  Serious: Yes (Other)
  Sender: FDA-Public Use
  Company Number: RENA-10973

PATIENT
  Age: 51 Year
  Sex: Female
  Weight: 86 kg

DRUGS (13)
  1. RENAGEL [Suspect]
     Indication: HYPERPHOSPHATAEMIA
     Dosage: 1.6 G TID PO
     Route: 048
     Dates: start: 20040310, end: 20040401
  2. RENAGEL [Suspect]
     Indication: HYPERPHOSPHATAEMIA
     Dosage: 0.8 G PRN PO
     Route: 048
     Dates: start: 20040310, end: 20040401
  3. FOLIC ACID [Concomitant]
  4. VITAMIN B-12 [Concomitant]
  5. VITAMIN B6 [Concomitant]
  6. REPLAVITE [Concomitant]
  7. FUROSEMIDE [Concomitant]
  8. LIPITOR [Concomitant]
  9. DOCUSATE [Concomitant]
  10. ONE ALPHA (VITAMIN D) [Concomitant]
  11. BASALJEL (ALUMINIUM CARBONATE) [Concomitant]
  12. POTASSIUM [Concomitant]
  13. TRIFERREX [Concomitant]

REACTIONS (2)
  - NAUSEA [None]
  - VOMITING [None]
